FAERS Safety Report 8799169 (Version 1)
Quarter: 2012Q4

REPORT INFORMATION
  Report Type: 
  Country: US (occurrence: US)
  Receive Date: 20120920
  Receipt Date: 20120920
  Transmission Date: 20130627
  Serious: Yes (Other)
  Sender: FDA-Public Use
  Company Number: US-ASTRAZENECA-2012SE15379

PATIENT
  Age: 60 Year
  Sex: Male
  Weight: 79.8 kg

DRUGS (12)
  1. LISINOPRIL [Suspect]
     Route: 048
  2. OMEPRAZOLE [Suspect]
     Indication: GASTRIC DISORDER
     Route: 048
     Dates: start: 20110916
  3. CRESTOR [Concomitant]
     Route: 048
     Dates: start: 20111116
  4. NORVASC [Concomitant]
     Route: 048
     Dates: start: 20111003
  5. DELTASONE [Concomitant]
     Route: 048
     Dates: start: 20111002
  6. DELTASONE [Concomitant]
     Route: 048
  7. DELTASONE [Concomitant]
     Route: 048
  8. DELTASONE [Concomitant]
     Route: 048
     Dates: end: 20111231
  9. HYDRODIURIL [Concomitant]
     Indication: BLOOD PRESSURE
     Route: 048
     Dates: start: 20110916
  10. LOPRESSOR [Concomitant]
     Route: 048
     Dates: start: 20110708
  11. ASPIRIN [Concomitant]
     Route: 048
     Dates: start: 20110502
  12. BENADRYL [Concomitant]
     Route: 048
     Dates: start: 20110502

REACTIONS (3)
  - Angioedema [Unknown]
  - Oedema [Unknown]
  - Pruritus [Unknown]
